FAERS Safety Report 13006722 (Version 1)
Quarter: 2016Q4

REPORT INFORMATION
  Report Type: Spontaneous
  Country: US (occurrence: US)
  Receive Date: 20161207
  Receipt Date: 20161207
  Transmission Date: 20170207
  Serious: No
  Sender: FDA-Public Use
  Company Number: GXBR2016US003270

PATIENT
  Sex: Female

DRUGS (2)
  1. ISOSORBIDE DINITRATE SUBLINGUAL TABLETS, USP [Suspect]
     Active Substance: ISOSORBIDE DINITRATE
     Indication: PRODUCT USED FOR UNKNOWN INDICATION
     Dosage: UNK DF, UNK
     Route: 065
  2. HYDRALAZINE HCL TABLETS USP [Suspect]
     Active Substance: HYDRALAZINE HYDROCHLORIDE
     Indication: PRODUCT USED FOR UNKNOWN INDICATION
     Dosage: UNK DF, UNK
     Route: 065

REACTIONS (2)
  - Syncope [Unknown]
  - Dizziness [Unknown]
